FAERS Safety Report 15363252 (Version 1)
Quarter: 2018Q3

REPORT INFORMATION
  Report Type: Spontaneous
  Country: DE (occurrence: DE)
  Receive Date: 20180907
  Receipt Date: 20180907
  Transmission Date: 20181010
  Serious: Yes (Hospitalization)
  Sender: FDA-Public Use
  Company Number: DE-009507513-1809DEU001051

PATIENT
  Age: 72 Year
  Sex: Female
  Weight: 115 kg

DRUGS (5)
  1. NOVAMINSULFON [Concomitant]
     Active Substance: METAMIZOLE
     Indication: BACK PAIN
     Dosage: 500 MG/OD
     Dates: start: 20140513
  2. OPIPRAMOL HYDROCHLORIDE [Concomitant]
     Active Substance: OPIPRAMOL HYDROCHLORIDE
     Indication: GENERAL SYMPTOM
     Dosage: UNK
     Dates: start: 2006
  3. VELMETIA [Suspect]
     Active Substance: METFORMIN\SITAGLIPTIN
     Indication: TYPE 2 DIABETES MELLITUS
     Dosage: 50 MG/850 MG TABLET
     Route: 048
     Dates: start: 20150907, end: 20160302
  4. LOSARTAN. [Concomitant]
     Active Substance: LOSARTAN
     Indication: HYPERTONIA
     Dosage: 160 MG, QD
     Dates: start: 2006
  5. BERLTHYROX [Concomitant]
     Indication: HYPOTHYROIDISM
     Dosage: 75 MG, UNK
     Dates: start: 2006

REACTIONS (4)
  - Palpitations [Recovered/Resolved]
  - Hypersensitivity [Recovered/Resolved]
  - Language disorder [Recovered/Resolved]
  - Abdominal discomfort [Recovered/Resolved]

NARRATIVE: CASE EVENT DATE: 2016
